FAERS Safety Report 8181767-6 (Version None)
Quarter: 2012Q1

REPORT INFORMATION
  Report Type: 
  Country: None (occurrence: None)
  Receive Date: 20120302
  Receipt Date: 20110928
  Transmission Date: 20120608
  Serious: Yes (Other)
  Sender: FDA-Public Use
  Company Number: US-AMGEN-USASP2011050256

PATIENT
  Age: 7 Year
  Sex: Female

DRUGS (6)
  1. NEUTRA-PHOS                        /00555301/ [Concomitant]
  2. PROGRAF [Concomitant]
  3. DRISDOL [Concomitant]
  4. NPLATE [Suspect]
     Indication: IDIOPATHIC THROMBOCYTOPENIC PURPURA
     Dates: start: 20110823
  5. FERROUS SULFATE TAB [Concomitant]
  6. AMICAR [Concomitant]

REACTIONS (1)
  - DRUG INEFFECTIVE [None]
